FAERS Safety Report 8515233-2 (Version None)
Quarter: 2012Q3

REPORT INFORMATION
  Report Type: 
  Country: None (occurrence: None)
  Receive Date: 20120717
  Receipt Date: 20120703
  Transmission Date: 20120928
  Serious: Yes (Other)
  Sender: FDA-Public Use
  Company Number: GB-WATSON-2012-11747

PATIENT
  Sex: Female

DRUGS (10)
  1. MAGNESIUM SULFATE [Suspect]
     Indication: PARENTERAL NUTRITION
     Dosage: 50 %, UNKNOWN
     Route: 042
  2. SODIUM CHLORIDE (UNKNOWN) [Suspect]
     Indication: PARENTERAL NUTRITION
     Dosage: 30 %, UNKNOWN, SODIUM CHLORIDE 30% (MANUFACTURER UNKNOWN).
     Route: 065
  3. POTASSIUM CHLORIDE [Suspect]
     Indication: PARENTERAL NUTRITION
     Route: 065
  4. CALCIUM CHLORIDE [Suspect]
     Indication: PARENTERAL NUTRITION
     Dosage: CALCIUM CHLORIDE (MANUFACTURER UNKNOWN)
     Route: 065
  5. WATER FOR INJECTION [Suspect]
     Indication: PARENTERAL NUTRITION
     Route: 042
  6. GLUCOSE [Suspect]
     Indication: PARENTERAL NUTRITION
     Dosage: 50 %, UNKNOWN
     Route: 065
  7. SODIUM GLYCEROPHOSPHATE [Suspect]
     Indication: PARENTERAL NUTRITION
     Dosage: SODIUM GLYCEROPHOSPHATE (MANUFACTURER UNKNOWN)
     Route: 065
  8. AMINO ACIDS [Suspect]
     Indication: PARENTERAL NUTRITION
     Dosage: 15 %, UNKNOWN, AMINOVEN 15%
     Route: 065
  9. TRACE METAL ADDITIVE IN NACL [Suspect]
     Indication: PARENTERAL NUTRITION
     Route: 065
  10. FATS [Suspect]
     Indication: PARENTERAL NUTRITION
     Dosage: 20 %, UNKNOWN, CLINOLEIC 20%.
     Route: 065

REACTIONS (3)
  - DRUG ADMINISTRATION ERROR [None]
  - MALAISE [None]
  - TREMOR [None]
